FAERS Safety Report 4509826-7 (Version None)
Quarter: 2004Q4

REPORT INFORMATION
  Report Type: 
  Country: None (occurrence: None)
  Receive Date: 20041124
  Receipt Date: 20041117
  Transmission Date: 20050328
  Serious: Yes (Death, Life-Threatening, Other)
  Sender: FDA-Public Use
  Company Number: PHBS2004IL15504

PATIENT
  Age: 27 Year
  Sex: Male

DRUGS (10)
  1. CYCLOSPORINE [Suspect]
     Indication: BONE MARROW TRANSPLANT
     Dosage: 3 MG/KG/D
     Route: 042
     Dates: start: 20010401
  2. FLUDARABINE [Concomitant]
     Dates: start: 20010401
  3. BUSULFAN [Concomitant]
  4. MELPHALAN [Concomitant]
  5. CAMPATH [Concomitant]
  6. CYTOSAR-U [Concomitant]
  7. GANCICLOVIR [Concomitant]
  8. ACYCLOVIR [Concomitant]
  9. SULFAMETHOXAZOLE + TRIMETHOPRIM [Concomitant]
  10. METHYLPREDNISOLONE [Suspect]
     Dosage: 2-1.5-2 MG/KG/D
     Route: 065

REACTIONS (24)
  - ASTHENIA [None]
  - BACK PAIN [None]
  - BONE MARROW DEPRESSION [None]
  - BRONCHOPULMONARY ASPERGILLOSIS [None]
  - CARDIO-RESPIRATORY ARREST [None]
  - CUSHING'S SYNDROME [None]
  - DIABETES MELLITUS [None]
  - GASTRITIS EROSIVE [None]
  - GASTROINTESTINAL HAEMORRHAGE [None]
  - GRAFT DYSFUNCTION [None]
  - GRAFT VERSUS HOST DISEASE [None]
  - HYPOREFLEXIA [None]
  - LIFE SUPPORT [None]
  - LIPOMATOSIS [None]
  - MYOPATHY [None]
  - NUCLEAR MAGNETIC RESONANCE IMAGING ABNORMAL [None]
  - OSTEOPOROSIS [None]
  - PAIN IN EXTREMITY [None]
  - PARAPARESIS [None]
  - PNEUMONIA CYTOMEGALOVIRAL [None]
  - RESPIRATORY FAILURE [None]
  - STAPHYLOCOCCAL SEPSIS [None]
  - URINARY INCONTINENCE [None]
  - WHITE BLOOD CELL COUNT DECREASED [None]
